FAERS Safety Report 5384597-3 (Version None)
Quarter: 2007Q3

REPORT INFORMATION
  Report Type: 
  Country: None (occurrence: None)
  Receive Date: 20070711
  Receipt Date: 20070705
  Transmission Date: 20080115
  Serious: Yes (Other)
  Sender: FDA-Public Use
  Company Number: GB-SHR-GB-2007-025005

PATIENT
  Age: 53 Year
  Sex: Male

DRUGS (2)
  1. CAMPATH 30 [Suspect]
     Indication: MYCOSIS FUNGOIDES
     Dosage: 30 MG, 3X/WEEK
  2. ANTIINFECTIVES [Concomitant]
     Indication: ANTIBIOTIC PROPHYLAXIS

REACTIONS (3)
  - HYPERCALCAEMIA [None]
  - RENAL IMPAIRMENT [None]
  - SARCOIDOSIS [None]
